FAERS Safety Report 8950128 (Version 1)
Quarter: 2012Q4

REPORT INFORMATION
  Report Type: 
  Country: US (occurrence: US)
  Receive Date: 20121205
  Receipt Date: 20121205
  Transmission Date: 20130627
  Serious: Yes (Death)
  Sender: FDA-Public Use
  Company Number: US-ASTELLAS-2012US002585

PATIENT
  Sex: Male
  Weight: 88 kg

DRUGS (2)
  1. TARCEVA [Suspect]
     Indication: PANCREATIC CARCINOMA STAGE IV
     Dosage: 100 mg, UID/QD
     Route: 048
     Dates: start: 20120202
  2. GEMZAR [Concomitant]
     Indication: PANCREATIC CARCINOMA STAGE IV
     Dosage: 2000 mg, Unknown/D
     Route: 042
     Dates: start: 20111218, end: 20120119

REACTIONS (2)
  - Malignant neoplasm progression [Fatal]
  - Neoplasm malignant [Fatal]
